FAERS Safety Report 4647112-5 (Version None)
Quarter: 2005Q2

REPORT INFORMATION
  Report Type: 
  Country: None (occurrence: None)
  Receive Date: 20050331
  Receipt Date: 20050121
  Transmission Date: 20051028
  Serious: No
  Sender: FDA-Public Use
  Company Number: 05P-163-0287721-00

PATIENT
  Age: 61 Year
  Sex: Male
  Weight: 105 kg

DRUGS (9)
  1. HUMIRA [Suspect]
     Indication: RHEUMATOID ARTHRITIS
     Dosage: 40 MG, 1 IN 2 WK, SUBCUTANEOUS
     Route: 058
     Dates: start: 20030318
  2. ALENDRONATE SODIUM [Concomitant]
  3. LANSOPRAZOLE [Concomitant]
  4. FOLIC ACID [Concomitant]
  5. METHOTREXATE SODIUM [Concomitant]
  6. FENOFIBRATE [Concomitant]
  7. ZETIA [Concomitant]
  8. LOTREL [Concomitant]
  9. MULTI-VITAMINS [Concomitant]

REACTIONS (2)
  - COUGH [None]
  - THROAT IRRITATION [None]
